FAERS Safety Report 10610089 (Version 2)
Quarter: 2014Q4

REPORT INFORMATION
  Report Type: Spontaneous
  Country: CA (occurrence: CA)
  Receive Date: 20141126
  Receipt Date: 20141205
  Transmission Date: 20150529
  Serious: Yes (Other)
  Sender: FDA-Public Use
  Company Number: CA-BAYER-2014-174165

PATIENT
  Age: 24 Year
  Sex: Female

DRUGS (3)
  1. VISANNE [Suspect]
     Active Substance: DIENOGEST
     Route: 048
  2. MIRENA [Suspect]
     Active Substance: LEVONORGESTREL
     Indication: CONTRACEPTION
     Dosage: 20 MCG/24HR, CONT
     Route: 015
     Dates: start: 20140905, end: 201409
  3. MIRENA [Suspect]
     Active Substance: LEVONORGESTREL
     Indication: ENDOMETRIOSIS

REACTIONS (5)
  - Headache [None]
  - Medical device discomfort [None]
  - Blindness [None]
  - Photophobia [None]
  - Migraine [None]

NARRATIVE: CASE EVENT DATE: 201409
